FAERS Safety Report 8076495-1 (Version None)
Quarter: 2012Q1

REPORT INFORMATION
  Report Type: 
  Country: None (occurrence: None)
  Receive Date: 20120125
  Receipt Date: 20120125
  Transmission Date: 20120608
  Serious: Yes (Hospitalization)
  Sender: FDA-Public Use
  Company Number: None

PATIENT

DRUGS (2)
  1. CARDIZEM CD [Suspect]
     Dosage: CAPSULE ORAL 240MG
     Route: 048
  2. CARDIZEM [Suspect]
     Dosage: ORAL
     Route: 048

REACTIONS (5)
  - PRODUCT BARCODE ISSUE [None]
  - DYSPNOEA [None]
  - HYPERTENSION [None]
  - MEDICATION ERROR [None]
  - WRONG DRUG ADMINISTERED [None]
